FAERS Safety Report 5406057-3 (Version None)
Quarter: 2007Q3

REPORT INFORMATION
  Report Type: 
  Country: None (occurrence: None)
  Receive Date: 20070806
  Receipt Date: 20070803
  Transmission Date: 20080115
  Serious: Yes (Disabling)
  Sender: FDA-Public Use
  Company Number: B0479343A

PATIENT
  Age: 68 Year
  Sex: Male

DRUGS (3)
  1. VALTREX [Suspect]
     Indication: HERPES ZOSTER
     Dosage: 1G THREE TIMES PER DAY
     Route: 048
     Dates: start: 20070710, end: 20070712
  2. LOXONIN [Concomitant]
     Route: 048
     Dates: start: 20070710, end: 20070710
  3. MUCOSTA [Concomitant]
     Route: 048
     Dates: start: 20070710, end: 20070710

REACTIONS (5)
  - BLISTER [None]
  - ERYTHEMA [None]
  - FEELING HOT [None]
  - OEDEMA PERIPHERAL [None]
  - RASH [None]
